FAERS Safety Report 6444541-4 (Version None)
Quarter: 2009Q4

REPORT INFORMATION
  Report Type: 
  Country: None (occurrence: None)
  Receive Date: 20091118
  Receipt Date: 20090819
  Transmission Date: 20100525
  Serious: No
  Sender: FDA-Public Use
  Company Number: A0785567A

PATIENT
  Age: 70 Year
  Sex: Female

DRUGS (3)
  1. COREG CR [Suspect]
     Indication: ARRHYTHMIA
     Dosage: 20MG PER DAY
     Route: 048
     Dates: start: 20090501
  2. PLAVIX [Concomitant]
  3. SYNTHROID [Concomitant]

REACTIONS (3)
  - BLOOD PRESSURE SYSTOLIC [None]
  - GAIT DISTURBANCE [None]
  - PALPITATIONS [None]
